FAERS Safety Report 11696677 (Version 1)
Quarter: 2015Q4

REPORT INFORMATION
  Report Type: Report from Study
  Country: NL (occurrence: NL)
  Receive Date: 20151104
  Receipt Date: 20151104
  Transmission Date: 20160304
  Serious: Yes (Hospitalization)
  Sender: FDA-Public Use
  Company Number: NL-ABBVIE-15P-114-1490662-00

PATIENT
  Sex: Male

DRUGS (1)
  1. DUODOPA [Suspect]
     Active Substance: CARBIDOPA\LEVODOPA
     Indication: PARKINSON^S DISEASE
     Dosage: 20/5MG/ML,MD: 10.5 CONT DOSE 5.4, ED 4, NIGHT DOSE 4.1
     Route: 050
     Dates: start: 20131011

REACTIONS (1)
  - Urinary tract infection [Not Recovered/Not Resolved]
